FAERS Safety Report 12180863 (Version 1)
Quarter: 2016Q1

REPORT INFORMATION
  Report Type: Spontaneous
  Country: IT (occurrence: IT)
  Receive Date: 20160315
  Receipt Date: 20160315
  Transmission Date: 20160526
  Serious: Yes (Hospitalization)
  Sender: FDA-Public Use
  Company Number: IT-BAYER-2016-046198

PATIENT
  Age: 85 Year
  Sex: Male

DRUGS (12)
  1. TOTALIP [Concomitant]
     Active Substance: ATORVASTATIN
  2. CONGESCOR [Concomitant]
     Active Substance: BISOPROLOL
  3. FORADIL [Concomitant]
     Active Substance: FORMOTEROL FUMARATE
  4. PLAVIX [Suspect]
     Active Substance: CLOPIDOGREL BISULFATE
     Indication: ANTIPLATELET THERAPY
     Dosage: UNK
     Route: 048
     Dates: start: 20150101, end: 20151015
  5. ZYLORIC [Concomitant]
     Active Substance: ALLOPURINOL
  6. FLIXOTIDE [Concomitant]
     Active Substance: FLUTICASONE PROPIONATE
  7. AVODART [Concomitant]
     Active Substance: DUTASTERIDE
  8. ZANTAC [Concomitant]
     Active Substance: RANITIDINE HYDROCHLORIDE
  9. LASIX [Concomitant]
     Active Substance: FUROSEMIDE
  10. ACETYLSALICYLIC ACID({=100 MG) [Suspect]
     Active Substance: ASPIRIN
     Indication: THROMBOSIS PROPHYLAXIS
     Dosage: DAILY DOSE 100 MG
     Route: 048
     Dates: start: 20150101, end: 20151015
  11. CARDURA [Concomitant]
     Active Substance: DOXAZOSIN MESYLATE
  12. TRIATEC [Concomitant]
     Active Substance: RAMIPRIL
     Dosage: UNK

REACTIONS (1)
  - Altered state of consciousness [Unknown]

NARRATIVE: CASE EVENT DATE: 20151015
